FAERS Safety Report 21006559 (Version 4)
Quarter: 2022Q4

REPORT INFORMATION
  Report Type: Report from Study
  Country: US (occurrence: US)
  Receive Date: 20220624
  Receipt Date: 20221221
  Transmission Date: 20230112
  Serious: Yes (Other)
  Sender: FDA-Public Use
  Company Number: US-ABBVIE-22K-163-4443143-00

PATIENT
  Age: 53 Year
  Sex: Male
  Weight: 101.6 kg

DRUGS (4)
  1. VENCLEXTA [Suspect]
     Active Substance: VENETOCLAX
     Indication: B-cell small lymphocytic lymphoma
     Route: 048
     Dates: start: 20220530
  2. VENCLEXTA [Suspect]
     Active Substance: VENETOCLAX
     Indication: B-cell small lymphocytic lymphoma
     Route: 048
     Dates: start: 20220520, end: 202205
  3. ACYCLOVIR [Concomitant]
     Active Substance: ACYCLOVIR
     Indication: Neoplasm malignant
     Dosage: 400 MG
     Route: 048
     Dates: start: 20220530
  4. LEVETIRACETAM [Concomitant]
     Active Substance: LEVETIRACETAM
     Indication: Intracranial aneurysm
     Route: 048
     Dates: start: 201811

REACTIONS (4)
  - Postoperative thrombosis [Recovering/Resolving]
  - Gait inability [Unknown]
  - Weight decreased [Recovered/Resolved]
  - Fatigue [Unknown]

NARRATIVE: CASE EVENT DATE: 20220621
